FAERS Safety Report 9186178 (Version 3)
Quarter: 2013Q3

REPORT INFORMATION
  Report Type: Spontaneous
  Country: US (occurrence: US)
  Receive Date: 20130325
  Receipt Date: 20130904
  Transmission Date: 20140515
  Serious: Yes (Other)
  Sender: FDA-Public Use
  Company Number: US-GLAXOSMITHKLINE-A1016852A

PATIENT
  Sex: Male

DRUGS (1)
  1. TYKERB [Suspect]
     Indication: NEUROFIBROMATOSIS
     Dosage: 1250MG PER DAY
     Route: 048
     Dates: start: 201209

REACTIONS (2)
  - Spinal operation [Unknown]
  - Surgery [Unknown]
